FAERS Safety Report 12474388 (Version 1)
Quarter: 2016Q2

REPORT INFORMATION
  Report Type: Spontaneous
  Country: US (occurrence: None)
  Receive Date: 20160616
  Receipt Date: 20160616
  Transmission Date: 20160815
  Serious: Yes (Hospitalization)
  Sender: FDA-Public Use
  Company Number: None

PATIENT
  Age: 74 Year
  Sex: Female
  Weight: 100.7 kg

DRUGS (6)
  1. ATENOLOL. [Concomitant]
     Active Substance: ATENOLOL
  2. PHENYLEPHRINE 10% AKORN [Suspect]
     Active Substance: PHENYLEPHRINE HYDROCHLORIDE
     Indication: CATARACT OPERATION
     Dosage: 10% 1XDOSE BEFORE CATARACT SURGERY EYE DROPS
     Dates: start: 20160525, end: 20160525
  3. FAMOTIDINE. [Concomitant]
     Active Substance: FAMOTIDINE
  4. ZYRTEC [Concomitant]
     Active Substance: CETIRIZINE HYDROCHLORIDE
  5. PHENYLEPHRINE 10% AKORN [Suspect]
     Active Substance: PHENYLEPHRINE HYDROCHLORIDE
     Indication: PREOPERATIVE CARE
     Dosage: 10% 1XDOSE BEFORE CATARACT SURGERY EYE DROPS
     Dates: start: 20160525, end: 20160525
  6. AMLODIPINE [Concomitant]
     Active Substance: AMLODIPINE BESYLATE

REACTIONS (5)
  - Feeling abnormal [None]
  - Blood pressure increased [None]
  - Wrong technique in product usage process [None]
  - Chest discomfort [None]
  - Cough [None]

NARRATIVE: CASE EVENT DATE: 20160525
